FAERS Safety Report 6877737-8 (Version None)
Quarter: 2010Q3

REPORT INFORMATION
  Report Type: 
  Country: None (occurrence: None)
  Receive Date: 20100727
  Receipt Date: 20100714
  Transmission Date: 20110219
  Serious: No
  Sender: FDA-Public Use
  Company Number: US-ABBOTT-10P-163-0658136-00

PATIENT
  Sex: Female
  Weight: 54.48 kg

DRUGS (3)
  1. SYNTHROID [Suspect]
     Indication: PRODUCT USED FOR UNKNOWN INDICATION
  2. SYNTHROID [Suspect]
  3. UNKNOWN MEDICATIONS [Concomitant]
     Indication: PRODUCT USED FOR UNKNOWN INDICATION

REACTIONS (6)
  - FEELING ABNORMAL [None]
  - FEELING JITTERY [None]
  - PHARYNGEAL OEDEMA [None]
  - TACHYPHRENIA [None]
  - TREMOR [None]
  - WEIGHT DECREASED [None]
